FAERS Safety Report 16723978 (Version 1)
Quarter: 2019Q3

REPORT INFORMATION
  Report Type: Report from Study
  Country: CL (occurrence: CL)
  Receive Date: 20190821
  Receipt Date: 20190821
  Transmission Date: 20191005
  Serious: No
  Sender: FDA-Public Use
  Company Number: CL-BEH-2019106038

PATIENT
  Age: 23 Year
  Sex: Female

DRUGS (4)
  1. BERINERT [Suspect]
     Active Substance: HUMAN C1-ESTERASE INHIBITOR
     Indication: HEREDITARY ANGIOEDEMA
     Dosage: 1500 INTERNATIONAL UNIT, 3 VIALS OF 500 UI
     Route: 042
     Dates: start: 201806
  2. BERINERT [Suspect]
     Active Substance: HUMAN C1-ESTERASE INHIBITOR
     Dosage: 3 VIALS OF 500 UI, TOT
     Route: 042
     Dates: start: 20190803, end: 20190803
  3. BERINERT [Suspect]
     Active Substance: HUMAN C1-ESTERASE INHIBITOR
     Indication: HEREDITARY ANGIOEDEMA
     Dosage: 1500 INTERNATIONAL UNIT, 3 VIALS OF 500 UI
     Route: 042
     Dates: start: 201806
  4. BERINERT [Suspect]
     Active Substance: HUMAN C1-ESTERASE INHIBITOR
     Dosage: 3 VIALS OF 500 UI, TOT
     Route: 042
     Dates: start: 20190803, end: 20190803

REACTIONS (1)
  - Nasopharyngitis [Not Recovered/Not Resolved]
